FAERS Safety Report 25907474 (Version 1)
Quarter: 2025Q4

REPORT INFORMATION
  Report Type: Spontaneous
  Country: US (occurrence: US)
  Receive Date: 20251010
  Receipt Date: 20251010
  Transmission Date: 20260117
  Serious: No
  Sender: JOHNSON AND JOHNSON
  Company Number: US-JNJFOC-20251010644

PATIENT
  Age: 49 Year
  Sex: Male

DRUGS (2)
  1. TREMFYA [Suspect]
     Active Substance: GUSELKUMAB
     Indication: Psoriasis
     Route: 065
  2. NITROGLYCERIN [Concomitant]
     Active Substance: NITROGLYCERIN
     Indication: Chest discomfort

REACTIONS (9)
  - Paraesthesia [Unknown]
  - Hypoaesthesia [Unknown]
  - Chest discomfort [Unknown]
  - Testicular pain [Unknown]
  - Abdominal pain lower [Unknown]
  - Chest discomfort [Unknown]
  - Heart rate abnormal [Unknown]
  - Hypertension [Unknown]
  - Stress [Unknown]

NARRATIVE: CASE EVENT DATE: 20250929
